FAERS Safety Report 7119503-4 (Version None)
Quarter: 2010Q4

REPORT INFORMATION
  Report Type: 
  Country: None (occurrence: None)
  Receive Date: 20101123
  Receipt Date: 20100715
  Transmission Date: 20110411
  Serious: Yes (Other)
  Sender: FDA-Public Use
  Company Number: AU-JNJFOC-20100705857

PATIENT
  Sex: Female
  Weight: 65 kg

DRUGS (1)
  1. STELARA [Suspect]
     Indication: PSORIASIS
     Dosage: WEEK 0
     Route: 058

REACTIONS (8)
  - ARTHRALGIA [None]
  - ASTHENIA [None]
  - BURNING SENSATION [None]
  - FATIGUE [None]
  - LOWER RESPIRATORY TRACT INFECTION [None]
  - NIGHT SWEATS [None]
  - RASH VESICULAR [None]
  - SINUSITIS [None]
